FAERS Safety Report 4424659-8 (Version None)
Quarter: 2004Q3

REPORT INFORMATION
  Report Type: 
  Country: None (occurrence: None)
  Receive Date: 20040805
  Receipt Date: 20040722
  Transmission Date: 20050211
  Serious: Yes (Hospitalization)
  Sender: FDA-Public Use
  Company Number: 2004-BP-05115NB

PATIENT
  Age: 81 Year
  Sex: Female

DRUGS (7)
  1. MOBIC [Suspect]
     Indication: BACK PAIN
     Dosage: 1 ANZ (NR), PO
     Route: 048
     Dates: start: 20020101, end: 20040608
  2. BLOPRESS (CANDESARTAN CILEXETIL) (TA) [Suspect]
     Indication: HYPERTENSION
     Dosage: 4 MG (NR), PO
     Route: 048
     Dates: start: 20040602, end: 20040608
  3. CEROCRAL                ( IFENPRODIL TARTRATE) [Suspect]
     Indication: DIZZINESS
     Dosage: 30MG PO
     Route: 048
     Dates: end: 20040608
  4. MYONAL       (EPERISONE HCL) [Suspect]
     Indication: BACK PAIN
     Dosage: 150MG
     Route: 048
     Dates: end: 20040608
  5. MILLISROL   (GLYCERYL TRINITRATE) [Suspect]
     Route: 048
  6. ADALAT [Suspect]
     Indication: HYPERTENSION
     Dosage: 40MG
     Route: 048
     Dates: end: 20040608
  7. BETAHISTINE HYDROCHLORIDE [Suspect]
     Indication: DIZZINESS
     Dosage: 18MG
     Route: 048
     Dates: end: 20040611

REACTIONS (6)
  - ALANINE AMINOTRANSFERASE INCREASED [None]
  - ASPARTATE AMINOTRANSFERASE INCREASED [None]
  - BLOOD ALKALINE PHOSPHATASE INCREASED [None]
  - BLOOD LACTATE DEHYDROGENASE INCREASED [None]
  - GAMMA-GLUTAMYLTRANSFERASE INCREASED [None]
  - HEPATIC FUNCTION ABNORMAL [None]
